FAERS Safety Report 19477887 (Version 1)
Quarter: 2021Q2

REPORT INFORMATION
  Report Type: Spontaneous
  Country: US (occurrence: US)
  Receive Date: 20210630
  Receipt Date: 20210630
  Transmission Date: 20210717
  Serious: No
  Sender: FDA-Public Use
  Company Number: US-NEOS THERAPEUTICS, LP-2020NEO00041

PATIENT
  Age: 11 Year
  Sex: Male
  Weight: 29.48 kg

DRUGS (1)
  1. COTEMPLA XR?ODT [Suspect]
     Active Substance: METHYLPHENIDATE
     Indication: ATTENTION DEFICIT HYPERACTIVITY DISORDER
     Dosage: 17.3 MG, 1X/DAY
     Route: 048
     Dates: start: 20200828

REACTIONS (3)
  - Dyskinesia [Not Recovered/Not Resolved]
  - Paraesthesia oral [Not Recovered/Not Resolved]
  - Muscle twitching [Not Recovered/Not Resolved]

NARRATIVE: CASE EVENT DATE: 20200828
